FAERS Safety Report 9012835 (Version 1)
Quarter: 2013Q1

REPORT INFORMATION
  Report Type: Spontaneous
  Country: US (occurrence: US)
  Receive Date: 20130114
  Receipt Date: 20130114
  Transmission Date: 20140127
  Serious: Yes (Life-Threatening, Hospitalization, Disabling)
  Sender: FDA-Public Use
  Company Number: US-009507513-1301USA003127

PATIENT
  Age: 82 Year
  Sex: Female

DRUGS (6)
  1. SINGULAIR [Suspect]
     Dosage: UNK
     Route: 048
  2. MUCODYNE [Suspect]
     Indication: ASTHMA
     Dosage: UNK
     Route: 048
  3. PULMICORT RESPULES [Suspect]
     Indication: BACK PAIN
  4. INTAL [Suspect]
     Indication: CEREBRAL INFARCTION
  5. CLARITIN [Suspect]
  6. UNIPHYL LA [Suspect]

REACTIONS (2)
  - Tubulointerstitial nephritis [Unknown]
  - Leukocytoclastic vasculitis [Unknown]
